FAERS Safety Report 23772383 (Version 3)
Quarter: 2024Q2

REPORT INFORMATION
  Report Type: Report from Study
  Country: US (occurrence: US)
  Receive Date: 20240423
  Receipt Date: 20240611
  Transmission Date: 20240716
  Serious: Yes (Other)
  Sender: FDA-Public Use
  Company Number: US-TAKEDA-2024TUS035167

PATIENT
  Age: 93 Year
  Sex: Male

DRUGS (5)
  1. IXAZOMIB [Suspect]
     Active Substance: IXAZOMIB
     Indication: Plasma cell myeloma
     Dosage: 2.3 MILLIGRAM
     Route: 048
     Dates: start: 202403
  2. IXAZOMIB [Suspect]
     Active Substance: IXAZOMIB
     Dosage: 2.3 MILLIGRAM
     Route: 048
     Dates: start: 20240401
  3. IXAZOMIB [Suspect]
     Active Substance: IXAZOMIB
     Dosage: 2.3 MILLIGRAM
     Route: 048
     Dates: start: 202404
  4. DEXAMETHASONE [Concomitant]
     Active Substance: DEXAMETHASONE
     Dosage: UNK
     Route: 065
  5. LENALIDOMIDE [Concomitant]
     Active Substance: LENALIDOMIDE
     Dosage: UNK
     Route: 065

REACTIONS (4)
  - Heart rate irregular [Unknown]
  - Ventricular extrasystoles [Recovered/Resolved]
  - Pigmentation disorder [Not Recovered/Not Resolved]
  - Fatigue [Not Recovered/Not Resolved]

NARRATIVE: CASE EVENT DATE: 20240401
